FAERS Safety Report 22197880 (Version 1)
Quarter: 2023Q2

REPORT INFORMATION
  Report Type: Spontaneous
  Country: US (occurrence: None)
  Receive Date: 20230411
  Receipt Date: 20230411
  Transmission Date: 20230721
  Serious: No
  Sender: FDA-Public Use
  Company Number: None

PATIENT
  Age: 49 Year
  Sex: Female
  Weight: 61.2 kg

DRUGS (4)
  1. PAXLOVID [Suspect]
     Active Substance: NIRMATRELVIR\RITONAVIR
     Indication: COVID-19
     Dosage: FREQUENCY : TWICE A DAY;?
     Route: 048
     Dates: start: 20230410, end: 20230410
  2. TYLENOL [Concomitant]
     Active Substance: ACETAMINOPHEN
  3. TORADOL [Concomitant]
     Active Substance: KETOROLAC TROMETHAMINE
  4. DepeMedrol [Concomitant]

REACTIONS (6)
  - Dysgeusia [None]
  - Vision blurred [None]
  - Aggression [None]
  - Crying [None]
  - Nervousness [None]
  - Therapy interrupted [None]

NARRATIVE: CASE EVENT DATE: 20230410
